FAERS Safety Report 20712159 (Version 1)
Quarter: 2022Q2

REPORT INFORMATION
  Report Type: Spontaneous
  Country: IE (occurrence: IE)
  Receive Date: 20220414
  Receipt Date: 20220414
  Transmission Date: 20220721
  Serious: Yes (Hospitalization)
  Sender: FDA-Public Use
  Company Number: IE-STRIDES ARCOLAB LIMITED-2022SP003944

PATIENT
  Sex: Male

DRUGS (9)
  1. LETROZOLE [Suspect]
     Active Substance: LETROZOLE
     Indication: Muscle building therapy
     Dosage: UNK
     Route: 065
  2. THYROXINE [Suspect]
     Active Substance: LEVOTHYROXINE
     Indication: Muscle building therapy
     Dosage: UNK
     Route: 048
  3. CLENBUTEROL [Suspect]
     Active Substance: CLENBUTEROL
     Indication: Muscle building therapy
     Dosage: UNK
     Route: 065
  4. DROMOSTANOLONE [Suspect]
     Active Substance: DROMOSTANOLONE
     Indication: Muscle building therapy
     Dosage: UNK
     Route: 065
  5. FLUOXYMESTERONE [Suspect]
     Active Substance: FLUOXYMESTERONE
     Indication: Muscle building therapy
     Dosage: UNK
     Route: 065
  6. MESTEROLONE [Suspect]
     Active Substance: MESTEROLONE
     Indication: Muscle building therapy
     Dosage: UNK
     Route: 065
  7. OXANDROLONE [Suspect]
     Active Substance: OXANDROLONE
     Indication: Muscle building therapy
     Dosage: UNK
     Route: 065
  8. STANOZOLOL [Suspect]
     Active Substance: STANOZOLOL
     Indication: Muscle building therapy
     Dosage: UNK
     Route: 065
  9. TRENBOLONE ACETATE [Suspect]
     Active Substance: TRENBOLONE ACETATE
     Indication: Muscle building therapy
     Dosage: UNK
     Route: 065

REACTIONS (2)
  - Intentional product misuse [Unknown]
  - Off label use [Unknown]
